FAERS Safety Report 7462268-7 (Version None)
Quarter: 2011Q2

REPORT INFORMATION
  Report Type: 
  Country: None (occurrence: None)
  Receive Date: 20110506
  Receipt Date: 20110407
  Transmission Date: 20111010
  Serious: Yes (Hospitalization)
  Sender: FDA-Public Use
  Company Number: US-BAYER-201032320NA

PATIENT
  Age: 28 Year
  Sex: Female
  Weight: 101 kg

DRUGS (10)
  1. ADVAIR DISKUS 100/50 [Concomitant]
     Dosage: UNK
     Dates: start: 20080811
  2. VERAMYST [Concomitant]
     Dosage: UNK
     Dates: start: 20080811
  3. FEXOFENADINE [Concomitant]
     Dosage: UNK
     Dates: start: 20080801
  4. NAPROXEN [Concomitant]
  5. GLYBURIDE [Concomitant]
     Indication: DIABETES MELLITUS
     Dosage: UNK
     Dates: start: 20071101, end: 20100701
  6. METFORMIN [Concomitant]
     Indication: DIABETES MELLITUS
     Dosage: UNK
     Dates: start: 20071101
  7. LEVAQUIN [Concomitant]
     Dosage: UNK
     Dates: start: 20080801
  8. PROAIR HFA [Concomitant]
     Dosage: UNK
     Dates: start: 20080811
  9. PREDNISONE [Concomitant]
     Dosage: UNK
     Dates: start: 20080801
  10. YASMIN [Suspect]
     Indication: MENSTRUATION IRREGULAR
     Dosage: UNK
     Route: 048
     Dates: start: 20070201, end: 20080814

REACTIONS (4)
  - DYSPNOEA [None]
  - PAIN [None]
  - PULMONARY EMBOLISM [None]
  - CHEST PAIN [None]
